FAERS Safety Report 23496137 (Version 1)
Quarter: 2024Q1

REPORT INFORMATION
  Report Type: Spontaneous
  Country: US (occurrence: None)
  Receive Date: 20240207
  Receipt Date: 20240207
  Transmission Date: 20240409
  Serious: No
  Sender: FDA-Public Use
  Company Number: US-ROCHE-3353069

PATIENT
  Sex: Male

DRUGS (15)
  1. XOLAIR [Suspect]
     Active Substance: OMALIZUMAB
     Indication: Prostate cancer
     Route: 065
     Dates: start: 20220401
  2. OFEV [Concomitant]
     Active Substance: NINTEDANIB
  3. ATORVASTATIN [Concomitant]
     Active Substance: ATORVASTATIN
  4. BREO ELLIPTA [Concomitant]
     Active Substance: FLUTICASONE FUROATE\VILANTEROL TRIFENATATE
  5. CALCIUM [Concomitant]
     Active Substance: CALCIUM
  6. FLUTICASONE [Concomitant]
     Active Substance: FLUTICASONE
  7. ERGOCALCIFEROL [Concomitant]
     Active Substance: ERGOCALCIFEROL
  8. XGEVA [Concomitant]
     Active Substance: DENOSUMAB
  9. AMLODIPINE [Concomitant]
     Active Substance: AMLODIPINE BESYLATE
  10. CALCIUM [Concomitant]
     Active Substance: CALCIUM
  11. ELIGARD [Concomitant]
     Active Substance: LEUPROLIDE ACETATE
  12. HYZAAR [Concomitant]
     Active Substance: HYDROCHLOROTHIAZIDE\LOSARTAN POTASSIUM
  13. LISINOPRIL [Concomitant]
     Active Substance: LISINOPRIL
  14. SF 5000 PLUS [Concomitant]
     Active Substance: SODIUM FLUORIDE
  15. TAMSULOSIN HYDROCHLORIDE [Concomitant]
     Active Substance: TAMSULOSIN HYDROCHLORIDE

REACTIONS (3)
  - Fatigue [Not Recovered/Not Resolved]
  - Dyspnoea [Not Recovered/Not Resolved]
  - Off label use [Unknown]
